FAERS Safety Report 24999037 (Version 1)
Quarter: 2025Q1

REPORT INFORMATION
  Report Type: Spontaneous
  Country: US (occurrence: US)
  Receive Date: 20250222
  Receipt Date: 20250222
  Transmission Date: 20250408
  Serious: No
  Sender: SANOFI AVENTIS
  Company Number: US-SA-2025SA048610

PATIENT
  Age: 60 Year
  Sex: Female

DRUGS (9)
  1. DUPIXENT [Suspect]
     Active Substance: DUPILUMAB
     Indication: Chronic obstructive pulmonary disease
     Dosage: 300 MG, QOW
     Route: 058
     Dates: start: 20250129
  2. AMLODIPINE [Concomitant]
     Active Substance: AMLODIPINE BESYLATE
  3. ASPIRIN [Concomitant]
     Active Substance: ASPIRIN
  4. DULOXETINE [Concomitant]
     Active Substance: DULOXETINE
  5. GLIPIZIDE [Concomitant]
     Active Substance: GLIPIZIDE
  6. NICOTINE [Concomitant]
     Active Substance: NICOTINE
  7. TOPIRAMATE [Concomitant]
     Active Substance: TOPIRAMATE
  8. ASPIRIN [Concomitant]
     Active Substance: ASPIRIN
  9. NICOTINE POLACRILEX [Concomitant]
     Active Substance: NICOTINE

REACTIONS (2)
  - Injection site pain [Not Recovered/Not Resolved]
  - Incorrect dose administered [Unknown]

NARRATIVE: CASE EVENT DATE: 20250129
